FAERS Safety Report 5118648-8 (Version None)
Quarter: 2006Q3

REPORT INFORMATION
  Report Type: 
  Country: None (occurrence: None)
  Receive Date: 20060927
  Receipt Date: 20060919
  Transmission Date: 20061208
  Serious: Yes (Death)
  Sender: FDA-Public Use
  Company Number: 228291

PATIENT
  Age: 46 Year
  Sex: 0

DRUGS (1)
  1. RITUXAN [Suspect]
     Indication: NON-HODGKIN'S LYMPHOMA

REACTIONS (3)
  - CARDIAC FAILURE [None]
  - CYTOKINE RELEASE SYNDROME [None]
  - SUDDEN DEATH [None]
